FAERS Safety Report 24630477 (Version 4)
Quarter: 2024Q4

REPORT INFORMATION
  Report Type: Spontaneous
  Country: CZ (occurrence: CZ)
  Receive Date: 20241118
  Receipt Date: 20241211
  Transmission Date: 20250115
  Serious: Yes (Hospitalization, Other)
  Sender: MYLAN
  Company Number: CZ-MYLANLABS-2024M1101672

PATIENT
  Age: 47 Year
  Sex: Female
  Weight: 69 kg

DRUGS (14)
  1. VENLAFAXINE [Suspect]
     Active Substance: VENLAFAXINE HYDROCHLORIDE
     Indication: Depression
     Dosage: 150 MILLIGRAM, QD
     Route: 065
     Dates: start: 202203
  2. ESCITALOPRAM [Suspect]
     Active Substance: ESCITALOPRAM OXALATE
     Indication: Depression
     Dosage: 20 MILLIGRAM
     Route: 065
     Dates: start: 2021, end: 202303
  3. MIRTAZAPINE [Suspect]
     Active Substance: MIRTAZAPINE
     Indication: Depression
     Dosage: 45 MILLIGRAM
     Route: 065
     Dates: start: 2015
  4. PREGABALIN [Suspect]
     Active Substance: PREGABALIN
     Indication: Neuralgia
     Dosage: 150 MILLIGRAM
     Route: 065
     Dates: start: 202204
  5. PREGABALIN [Suspect]
     Active Substance: PREGABALIN
     Dosage: 300 MILLIGRAM
     Route: 065
     Dates: start: 2024
  6. VENLAFAXINE [Suspect]
     Active Substance: VENLAFAXINE HYDROCHLORIDE
     Indication: Product used for unknown indication
     Dosage: 100 MILLIGRAM, QD
     Route: 065
  7. VORTIOXETINE [Suspect]
     Active Substance: VORTIOXETINE
     Indication: Depression
     Dosage: 20 MILLIGRAM
     Route: 065
     Dates: start: 2021, end: 2022
  8. ERENUMAB [Concomitant]
     Active Substance: ERENUMAB
     Indication: Migraine prophylaxis
     Dosage: UNK, Q28D
     Route: 065
     Dates: start: 2022
  9. DABIGATRAN [Concomitant]
     Active Substance: DABIGATRAN
     Indication: Pulmonary embolism
     Dosage: 300 MILLIGRAM
     Route: 065
     Dates: start: 2022
  10. KETAMINE [Concomitant]
     Active Substance: KETAMINE
     Indication: Depression
     Dosage: 69 MILLIGRAM
     Route: 045
     Dates: start: 2022
  11. KETAMINE [Concomitant]
     Active Substance: KETAMINE
     Dosage: 45 MILLIGRAM
     Route: 058
     Dates: start: 2023
  12. KETAMINE [Concomitant]
     Active Substance: KETAMINE
     Dosage: 60 MILLIGRAM (A TOTAL OF 14 TIMES)
     Route: 058
     Dates: start: 202301
  13. KETAMINE [Concomitant]
     Active Substance: KETAMINE
     Dosage: 60 MILLIGRAM (INTERVAL OF ONCE EVERY 7-10 DAYS)
     Route: 030
     Dates: start: 202402
  14. METAMIZOLE [Concomitant]
     Active Substance: METAMIZOLE
     Indication: Spinal pain
     Dosage: UNK
     Route: 065

REACTIONS (2)
  - Suicidal ideation [Unknown]
  - Drug ineffective [Unknown]

NARRATIVE: CASE EVENT DATE: 20220101
